FAERS Safety Report 10466484 (Version 3)
Quarter: 2014Q4

REPORT INFORMATION
  Report Type: Report from Study
  Country: US (occurrence: US)
  Receive Date: 20140922
  Receipt Date: 20141021
  Transmission Date: 20150528
  Serious: Yes (Other)
  Sender: FDA-Public Use
  Company Number: PHEH2014US018579

PATIENT
  Age: 36 Year
  Sex: Female
  Weight: 55.33 kg

DRUGS (1)
  1. GILENYA [Suspect]
     Active Substance: FINGOLIMOD HYDROCHLORIDE
     Indication: MULTIPLE SCLEROSIS
     Dosage: 0.5 MG, QD
     Route: 048
     Dates: start: 20140729, end: 20140920

REACTIONS (4)
  - Fungal infection [Unknown]
  - Genital herpes [Unknown]
  - Vaginitis bacterial [Unknown]
  - Vulvar dysplasia [Unknown]

NARRATIVE: CASE EVENT DATE: 20140918
